FAERS Safety Report 8530302-9 (Version None)
Quarter: 2012Q3

REPORT INFORMATION
  Report Type: 
  Country: None (occurrence: None)
  Receive Date: 20120723
  Receipt Date: 20120713
  Transmission Date: 20120928
  Serious: Yes (Hospitalization)
  Sender: FDA-Public Use
  Company Number: US-BAYER-2012-022076

PATIENT
  Age: 31 Year
  Sex: Female
  Weight: 102.4 kg

DRUGS (8)
  1. SELENIUM [Concomitant]
     Dosage: 250 MG, UNK
  2. FOLIC ACID [Concomitant]
  3. YASMIN [Suspect]
     Indication: CONTRACEPTION
     Dosage: UNK
     Dates: start: 20080308, end: 20080322
  4. VITAMIN D [Concomitant]
  5. FLAXSEED OIL [Concomitant]
  6. SIMVASTATIN [Concomitant]
     Dosage: 20 MG, QD
     Dates: start: 20040701
  7. CALCIUM [Concomitant]
     Dosage: 1200 MG, UNK
  8. VITAMIN B COMPLEX CAP [Concomitant]

REACTIONS (10)
  - DEEP VEIN THROMBOSIS [None]
  - FEAR OF DISEASE [None]
  - PULMONARY EMBOLISM [None]
  - PAIN [None]
  - ANHEDONIA [None]
  - ANXIETY [None]
  - INJURY [None]
  - PSYCHOLOGICAL TRAUMA [None]
  - OEDEMA PERIPHERAL [None]
  - SKIN DISCOLOURATION [None]
